FAERS Safety Report 6604010-5 (Version None)
Quarter: 2010Q1

REPORT INFORMATION
  Report Type: 
  Country: None (occurrence: None)
  Receive Date: 20100226
  Receipt Date: 20090406
  Transmission Date: 20100710
  Serious: No
  Sender: FDA-Public Use
  Company Number: A0778457A

PATIENT
  Age: 77 Year
  Sex: Female

DRUGS (1)
  1. LAMICTAL CD [Suspect]
     Indication: DRUG USE FOR UNKNOWN INDICATION
     Dosage: 25MG UNKNOWN
     Route: 048

REACTIONS (2)
  - ABDOMINAL PAIN UPPER [None]
  - NERVOUSNESS [None]
